FAERS Safety Report 10298652 (Version 5)
Quarter: 2015Q2

REPORT INFORMATION
  Report Type: Report from Study
  Country: US (occurrence: US)
  Receive Date: 20140711
  Receipt Date: 20150619
  Transmission Date: 20150821
  Serious: Yes (Hospitalization, Other)
  Sender: FDA-Public Use
  Company Number: US-SANOFI-AVENTIS-2013SA069983

PATIENT
  Age: 41 Year
  Sex: Female

DRUGS (3)
  1. AUBAGIO [Suspect]
     Active Substance: TERIFLUNOMIDE
     Indication: MULTIPLE SCLEROSIS
     Dosage: TAKEN FROM:3 MONTHS AGO
     Route: 048
     Dates: start: 201403, end: 20140627
  2. AUBAGIO [Suspect]
     Active Substance: TERIFLUNOMIDE
     Indication: MULTIPLE SCLEROSIS
     Dosage: TAKEN FROM:3 MONTHS AGO
     Route: 048
  3. AUBAGIO [Suspect]
     Active Substance: TERIFLUNOMIDE
     Indication: MULTIPLE SCLEROSIS
     Dosage: TAKEN FROM:3 MONTHS AGO
     Route: 048
     Dates: start: 20130308, end: 201402

REACTIONS (15)
  - Nausea [Unknown]
  - Hypoaesthesia [Unknown]
  - Hyperaesthesia [Unknown]
  - Malaise [Unknown]
  - Hot flush [Unknown]
  - Abdominal pain [Unknown]
  - Central nervous system lesion [Unknown]
  - Weight decreased [Unknown]
  - Bile duct stone [Unknown]
  - Balance disorder [Not Recovered/Not Resolved]
  - Drug dose omission [Unknown]
  - Multiple sclerosis relapse [Unknown]
  - Band sensation [Unknown]
  - Pain [Unknown]
  - Contusion [Not Recovered/Not Resolved]

NARRATIVE: CASE EVENT DATE: 201402
